FAERS Safety Report 9556226 (Version 1)
Quarter: 2013Q3

REPORT INFORMATION
  Report Type: Spontaneous
  Country: US (occurrence: US)
  Receive Date: 20130926
  Receipt Date: 20130926
  Transmission Date: 20140515
  Serious: No
  Sender: FDA-Public Use
  Company Number: US-009507513-1309USA006517

PATIENT
  Age: 29 Year
  Sex: Female
  Weight: 49.89 kg

DRUGS (1)
  1. IMPLANON [Suspect]
     Indication: CONTRACEPTION
     Dosage: LEFT ARM INSERTION
     Route: 059
     Dates: start: 20120920

REACTIONS (3)
  - Implant site pain [Unknown]
  - Device kink [Unknown]
  - Device breakage [Unknown]
